FAERS Safety Report 22190059 (Version 1)
Quarter: 2023Q2

REPORT INFORMATION
  Report Type: Spontaneous
  Country: NL (occurrence: NL)
  Receive Date: 20230410
  Receipt Date: 20230410
  Transmission Date: 20230722
  Serious: Yes (Other)
  Sender: FDA-Public Use
  Company Number: None

PATIENT
  Sex: Female
  Weight: 50.5 kg

DRUGS (1)
  1. APIXABAN [Suspect]
     Active Substance: APIXABAN
     Indication: Thrombosis prophylaxis
     Dosage: FREQUENCY TIME: 12 HOUR
     Dates: start: 20221209, end: 20230402

REACTIONS (5)
  - Somnolence [Recovering/Resolving]
  - Paraesthesia [Not Recovered/Not Resolved]
  - Neuralgia [Unknown]
  - Muscle twitching [Not Recovered/Not Resolved]
  - Polyneuropathy [Not Recovered/Not Resolved]
